FAERS Safety Report 23544277 (Version 1)
Quarter: 2024Q1

REPORT INFORMATION
  Report Type: Spontaneous
  Country: FR (occurrence: FR)
  Receive Date: 20240220
  Receipt Date: 20240220
  Transmission Date: 20240409
  Serious: Yes (Other)
  Sender: FDA-Public Use
  Company Number: None

PATIENT
  Age: 22 Year
  Sex: Male
  Weight: 80 kg

DRUGS (8)
  1. DAFALGAN [Suspect]
     Active Substance: ACETAMINOPHEN
     Indication: Pain
     Route: 048
     Dates: start: 20231104, end: 20231110
  2. DEPAKOTE [Suspect]
     Active Substance: DIVALPROEX SODIUM
     Indication: Psychiatric decompensation
     Dosage: 500 MG, COMPRIM? GASTROR?SISTANT
     Route: 048
     Dates: start: 20231103, end: 20231110
  3. HALDOL [Suspect]
     Active Substance: HALOPERIDOL
     Indication: Psychiatric decompensation
     Dosage: 5 MG, COMPRIM?
     Route: 048
     Dates: start: 20231025, end: 20231113
  4. OLANZAPINE [Suspect]
     Active Substance: OLANZAPINE
     Indication: Psychiatric decompensation
     Dosage: 20 MG, COMPRIM? ORODISPERSIBLE
     Route: 048
     Dates: start: 20231021, end: 20231109
  5. PALIPERIDONE [Suspect]
     Active Substance: PALIPERIDONE
     Indication: Schizophrenia
     Dosage: 150 MG, SUSPENSION INJECTABLE ? LIB?RATION PROLONG?E EN SERINGUE PR?REMPLIE
     Route: 030
     Dates: start: 20231107, end: 20231107
  6. RISPERIDONE [Suspect]
     Active Substance: RISPERIDONE
     Indication: Psychiatric decompensation
     Dosage: UNK
     Route: 048
     Dates: start: 20231103, end: 20231110
  7. CYAMEMAZINE [Suspect]
     Active Substance: CYAMEMAZINE
     Indication: Psychiatric decompensation
     Dosage: 50 MG/5 ML, SOLUTION INJECTABLE EN AMPOULE
     Route: 030
     Dates: start: 20231020, end: 20231110
  8. TRANXENE [Suspect]
     Active Substance: CLORAZEPATE DIPOTASSIUM
     Indication: Psychiatric decompensation
     Dosage: 5 MG, G?LULE
     Route: 042
     Dates: start: 20231020, end: 20231109

REACTIONS (2)
  - Cholestasis [Recovering/Resolving]
  - Hepatic cytolysis [Recovering/Resolving]

NARRATIVE: CASE EVENT DATE: 20231110
